FAERS Safety Report 22713743 (Version 8)
Quarter: 2024Q1

REPORT INFORMATION
  Report Type: Report from Study
  Country: US (occurrence: US)
  Receive Date: 20230717
  Receipt Date: 20240108
  Transmission Date: 20240410
  Serious: No
  Sender: FDA-Public Use
  Company Number: US-002147023-NVSC2023US156577

PATIENT
  Sex: Female

DRUGS (1)
  1. KESIMPTA [Suspect]
     Active Substance: OFATUMUMAB
     Indication: Multiple sclerosis
     Dosage: 20 MG
     Route: 065
     Dates: start: 202304

REACTIONS (5)
  - Contusion [Recovering/Resolving]
  - Brain fog [Unknown]
  - Feeling abnormal [Unknown]
  - Fatigue [Unknown]
  - Injection site bruising [Recovering/Resolving]
